FAERS Safety Report 9847156 (Version 2)
Quarter: 2014Q2

REPORT INFORMATION
  Report Type: Spontaneous
  Country: GB (occurrence: GB)
  Receive Date: 20140127
  Receipt Date: 20140519
  Transmission Date: 20141212
  Serious: Yes (Death)
  Sender: FDA-Public Use
  Company Number: GB-BRACCO-000821

PATIENT
  Age: 70 Year
  Sex: Female

DRUGS (5)
  1. NIOPAM [Suspect]
     Indication: ANGIOGRAM
     Route: 042
     Dates: start: 20130926, end: 20130926
  2. NORMAL SALINE [Concomitant]
     Dates: start: 20130926, end: 20130926
  3. AUGMENTIN [Concomitant]
  4. ENOXAPARIN [Concomitant]
  5. CLARITHROMYCIN [Concomitant]

REACTIONS (1)
  - Renal failure [Fatal]
